FAERS Safety Report 18630346 (Version 1)
Quarter: 2020Q4

REPORT INFORMATION
  Report Type: Spontaneous
  Country: SA (occurrence: SA)
  Receive Date: 20201218
  Receipt Date: 20201218
  Transmission Date: 20210114
  Serious: Yes (Hospitalization)
  Sender: FDA-Public Use
  Company Number: SA-LUPIN PHARMACEUTICALS INC.-2020-05321

PATIENT
  Age: 71 Year
  Sex: Male

DRUGS (12)
  1. MEROPENEM. [Concomitant]
     Active Substance: MEROPENEM
     Indication: STAPHYLOCOCCAL INFECTION
     Dosage: UNK
     Route: 065
  2. DAPTOMYCIN. [Suspect]
     Active Substance: DAPTOMYCIN
     Indication: OSTEOMYELITIS
  3. MEROPENEM. [Concomitant]
     Active Substance: MEROPENEM
     Indication: CELLULITIS
  4. VANCOMYCIN [Suspect]
     Active Substance: VANCOMYCIN
     Indication: OSTEOMYELITIS
     Dosage: UNK, FOR 6 WEEKS
     Route: 065
  5. VANCOMYCIN [Suspect]
     Active Substance: VANCOMYCIN
     Indication: CELLULITIS
  6. CEFTOBIPROLE [Concomitant]
     Active Substance: CEFTOBIPROLE
     Indication: OSTEOMYELITIS
  7. CEFTOBIPROLE [Concomitant]
     Active Substance: CEFTOBIPROLE
     Indication: STAPHYLOCOCCAL INFECTION
     Dosage: UNK
     Route: 065
  8. MEROPENEM. [Concomitant]
     Active Substance: MEROPENEM
     Indication: OSTEOMYELITIS
  9. DAPTOMYCIN. [Suspect]
     Active Substance: DAPTOMYCIN
     Indication: STAPHYLOCOCCAL INFECTION
     Dosage: UNK
     Route: 065
  10. VANCOMYCIN [Suspect]
     Active Substance: VANCOMYCIN
     Indication: STAPHYLOCOCCAL INFECTION
     Dosage: UNK
     Route: 065
  11. DAPTOMYCIN. [Suspect]
     Active Substance: DAPTOMYCIN
     Indication: CELLULITIS
  12. CEFTOBIPROLE [Concomitant]
     Active Substance: CEFTOBIPROLE
     Indication: CELLULITIS

REACTIONS (1)
  - Drug ineffective [Unknown]
